FAERS Safety Report 13023827 (Version 1)
Quarter: 2016Q4

REPORT INFORMATION
  Report Type: Spontaneous
  Country: US (occurrence: US)
  Receive Date: 20161212
  Receipt Date: 20161212
  Transmission Date: 20170207
  Serious: No
  Sender: FDA-Public Use
  Company Number: None

PATIENT
  Age: 34 Year
  Sex: Male

DRUGS (8)
  1. FAMOTIDINE. [Concomitant]
     Active Substance: FAMOTIDINE
  2. MAGNESIUM SULFATE. [Concomitant]
     Active Substance: MAGNESIUM SULFATE
  3. LEVOFLOXACIN. [Concomitant]
     Active Substance: LEVOFLOXACIN
  4. METHYLPREDNISOLONE. [Concomitant]
     Active Substance: METHYLPREDNISOLONE
  5. AZTREONAM. [Concomitant]
     Active Substance: AZTREONAM
  6. ENOXAPARIN [Concomitant]
     Active Substance: ENOXAPARIN
  7. IRON [Concomitant]
     Active Substance: IRON
  8. INSULIN ASPART [Suspect]
     Active Substance: INSULIN ASPART
     Indication: HYPERGLYCAEMIA
     Route: 058
     Dates: start: 20161126

REACTIONS (8)
  - Lethargy [None]
  - Blood glucose decreased [None]
  - Cystic fibrosis [None]
  - Blood glucose abnormal [None]
  - Oxygen saturation decreased [None]
  - Condition aggravated [None]
  - Blood glucose increased [None]
  - Slow response to stimuli [None]

NARRATIVE: CASE EVENT DATE: 20161127
